FAERS Safety Report 8362539-6 (Version None)
Quarter: 2012Q2

REPORT INFORMATION
  Report Type: 
  Country: None (occurrence: None)
  Receive Date: 20120516
  Receipt Date: 20120508
  Transmission Date: 20120825
  Serious: Yes (Hospitalization, Other)
  Sender: FDA-Public Use
  Company Number: US-BRISTOL-MYERS SQUIBB COMPANY-16578262

PATIENT
  Age: 38 Year
  Sex: Female

DRUGS (13)
  1. SIMVASTATIN [Concomitant]
  2. TRICOR [Concomitant]
  3. WARFARIN SODIUM [Suspect]
  4. EFFEXOR [Concomitant]
  5. TOPAMAX [Concomitant]
  6. XANAX [Concomitant]
  7. OXYCODONE HCL [Concomitant]
  8. DITROPAN [Concomitant]
  9. AMBIEN [Concomitant]
  10. ANCEF [Concomitant]
  11. HEPARIN [Concomitant]
  12. COUMADIN [Suspect]
     Dosage: ABOUT 2 YEARS
  13. TOPROL-XL [Concomitant]

REACTIONS (3)
  - DEVICE RELATED INFECTION [None]
  - INTERNATIONAL NORMALISED RATIO ABNORMAL [None]
  - ARTHRITIS INFECTIVE [None]
